FAERS Safety Report 4706632-5 (Version None)
Quarter: 2005Q3

REPORT INFORMATION
  Report Type: 
  Country: None (occurrence: None)
  Receive Date: 20050705
  Receipt Date: 20050621
  Transmission Date: 20060218
  Serious: Yes (Disabling)
  Sender: FDA-Public Use
  Company Number: US-ROCHE-408663

PATIENT
  Sex: Male

DRUGS (1)
  1. ACCUTANE [Suspect]
     Indication: ACNE
     Route: 048

REACTIONS (9)
  - ANHEDONIA [None]
  - ANXIETY [None]
  - GENITOURINARY TRACT NEOPLASM [None]
  - INJURY [None]
  - NEOPLASM MALIGNANT [None]
  - PAIN [None]
  - POLYTRAUMATISM [None]
  - TESTICULAR TORSION [None]
  - TESTIS CANCER [None]
